FAERS Safety Report 18731050 (Version 2)
Quarter: 2021Q1

REPORT INFORMATION
  Report Type: Spontaneous
  Country: US (occurrence: US)
  Receive Date: 20210112
  Receipt Date: 20210114
  Transmission Date: 20210419
  Serious: Yes (Other)
  Sender: FDA-Public Use
  Company Number: US-PFIZER INC-2021009297

PATIENT

DRUGS (1)
  1. IBRANCE [Suspect]
     Active Substance: PALBOCICLIB
     Indication: BREAST CANCER METASTATIC
     Dosage: UNK

REACTIONS (12)
  - Cancer pain [Not Recovered/Not Resolved]
  - Diarrhoea [Unknown]
  - Wheezing [Unknown]
  - Dyspnoea [Unknown]
  - Dyspepsia [Unknown]
  - Muscle twitching [Recovered/Resolved]
  - Abdominal distension [Unknown]
  - Fatigue [Unknown]
  - Muscle spasms [Recovered/Resolved]
  - Pleural effusion [Unknown]
  - Gastrooesophageal reflux disease [Unknown]
  - Vitreous floaters [Unknown]
